FAERS Safety Report 4581430-4 (Version None)
Quarter: 2005Q1

REPORT INFORMATION
  Report Type: 
  Country: None (occurrence: None)
  Receive Date: 20050214
  Receipt Date: 20041020
  Transmission Date: 20050727
  Serious: Yes (Hospitalization, Other)
  Sender: FDA-Public Use
  Company Number: US-GLAXOSMITHKLINE-A0530837A

PATIENT
  Age: 58 Year
  Sex: Female
  Weight: 58.2 kg

DRUGS (6)
  1. LAMICTAL [Suspect]
     Indication: EPILEPSY
     Dates: start: 20040501, end: 20040628
  2. PHENYTOIN [Concomitant]
     Dosage: 200MG TWICE PER DAY
  3. TOPIRAMATE [Concomitant]
     Dosage: 200MG TWICE PER DAY
  4. SYNTHROID [Concomitant]
  5. VITAMIN D [Concomitant]
  6. KLOR-CON [Concomitant]

REACTIONS (6)
  - ERYTHEMA [None]
  - MUCOUS MEMBRANE DISORDER [None]
  - RASH [None]
  - RASH SCALY [None]
  - SKIN HYPERTROPHY [None]
  - STEVENS-JOHNSON SYNDROME [None]
